FAERS Safety Report 5644300-6 (Version None)
Quarter: 2008Q1

REPORT INFORMATION
  Report Type: 
  Country: None (occurrence: None)
  Receive Date: 20080229
  Receipt Date: 20080220
  Transmission Date: 20080703
  Serious: Yes (Other)
  Sender: FDA-Public Use
  Company Number: PHEH2008US00967

PATIENT
  Sex: Female
  Weight: 52.607 kg

DRUGS (4)
  1. ACIPHEX [Concomitant]
     Indication: ABDOMINAL PAIN UPPER
     Dosage: UNK, 1/ QD
     Dates: start: 20080101
  2. MOTRIN [Concomitant]
     Indication: PAIN
     Dosage: UNK, 1/ QD
     Dates: start: 20071201
  3. GLEEVEC [Suspect]
     Dosage: 800 MG, QD
     Route: 048
     Dates: start: 20070407
  4. GLEEVEC [Suspect]
     Dosage: 400 MG, QD
     Route: 048
     Dates: end: 20080111

REACTIONS (6)
  - ASCITES [None]
  - ATELECTASIS [None]
  - DYSPNOEA [None]
  - PERICARDIAL EFFUSION [None]
  - PLEURAL EFFUSION [None]
  - PLEURISY [None]
